FAERS Safety Report 6695051-0 (Version None)
Quarter: 2010Q2

REPORT INFORMATION
  Report Type: 
  Country: None (occurrence: None)
  Receive Date: 20100423
  Receipt Date: 20100318
  Transmission Date: 20101027
  Serious: Yes (Other)
  Sender: FDA-Public Use
  Company Number: PHHY2010US24649

PATIENT
  Age: 18 Month
  Sex: Male

DRUGS (1)
  1. ELIDEL [Suspect]
     Indication: ECZEMA
     Dosage: MANY TIMES PER WEEK
     Route: 061

REACTIONS (2)
  - ABDOMINAL MASS [None]
  - T-CELL TYPE ACUTE LEUKAEMIA [None]
